FAERS Safety Report 8176612-9 (Version None)
Quarter: 2012Q1

REPORT INFORMATION
  Report Type: 
  Country: None (occurrence: None)
  Receive Date: 20120120
  Receipt Date: 20111006
  Transmission Date: 20120608
  Serious: Yes (Other)
  Sender: FDA-Public Use
  Company Number: 2011SP047441

PATIENT
  Age: 72 Year
  Sex: Female

DRUGS (2)
  1. DULERA ORAL INHALATION [Suspect]
     Indication: PRODUCT USED FOR UNKNOWN INDICATION
     Dates: end: 20111004
  2. ADVAIR DISKUS 100/50 [Concomitant]

REACTIONS (1)
  - BLOOD GLUCOSE INCREASED [None]
